FAERS Safety Report 7832103-3 (Version None)
Quarter: 2011Q4

REPORT INFORMATION
  Report Type: 
  Country: None (occurrence: None)
  Receive Date: 20111022
  Receipt Date: 20110621
  Transmission Date: 20120403
  Serious: Yes (Other)
  Sender: FDA-Public Use
  Company Number: CN-BAYER-2011-051271

PATIENT
  Age: 37 Year
  Sex: Male

DRUGS (1)
  1. ULTRAVIST 370 [Suspect]
     Indication: ANGIOGRAM
     Dosage: 30 ML, UNK

REACTIONS (8)
  - CHEST DISCOMFORT [None]
  - BLOOD PRESSURE DECREASED [None]
  - RESPIRATORY DISORDER [None]
  - ANAPHYLACTIC SHOCK [None]
  - EYELID OEDEMA [None]
  - HEART RATE DECREASED [None]
  - FLUSHING [None]
  - HYPOAESTHESIA ORAL [None]
